FAERS Safety Report 16193859 (Version 2)
Quarter: 2019Q2

REPORT INFORMATION
  Report Type: Spontaneous
  Country: US (occurrence: US)
  Receive Date: 20190413
  Receipt Date: 20190421
  Transmission Date: 20190711
  Serious: No
  Sender: FDA-Public Use
  Company Number: US-009507513-1904USA006000

PATIENT
  Age: 86 Year
  Sex: Male

DRUGS (6)
  1. LOSARTAN. [Concomitant]
     Active Substance: LOSARTAN
  2. PENTOXIFYLLINE. [Concomitant]
     Active Substance: PENTOXIFYLLINE
  3. BELSOMRA [Suspect]
     Active Substance: SUVOREXANT
     Indication: SLEEP DISORDER
     Dosage: 10 MILLIGRAM, QAM
     Route: 048
     Dates: start: 20190111, end: 2019
  4. BELSOMRA [Suspect]
     Active Substance: SUVOREXANT
     Indication: NIGHTMARE
     Dosage: ONCE TOOK TWO 10 MG TABLETS IN THE MORNING
     Route: 048
     Dates: start: 2019, end: 2019
  5. GABAPENTIN. [Concomitant]
     Active Substance: GABAPENTIN
  6. BELSOMRA [Suspect]
     Active Substance: SUVOREXANT
     Dosage: 10 MILLIGRAM, QAM
     Route: 048
     Dates: start: 2019

REACTIONS (4)
  - Intentional product use issue [Unknown]
  - Product use in unapproved indication [Unknown]
  - Insomnia [Not Recovered/Not Resolved]
  - Drug ineffective [Not Recovered/Not Resolved]

NARRATIVE: CASE EVENT DATE: 2019
